FAERS Safety Report 7414691-4 (Version None)
Quarter: 2011Q2

REPORT INFORMATION
  Report Type: 
  Country: None (occurrence: None)
  Receive Date: 20110414
  Receipt Date: 20110203
  Transmission Date: 20111010
  Serious: No
  Sender: FDA-Public Use
  Company Number: US-B.I. PHARMACEUTICALS,INC./RIDGEFIELD-2011-BP-03447BP

PATIENT
  Sex: Male

DRUGS (8)
  1. HYDROCHLOROTHIAZIDE [Concomitant]
     Indication: HYPERTENSION
  2. PRADAXA [Suspect]
     Indication: ATRIAL FIBRILLATION
     Dosage: 300 MG
     Route: 048
     Dates: start: 20110202
  3. LISINOPRIL [Concomitant]
     Indication: HYPERTENSION
  4. SOTALOL HCL [Concomitant]
     Indication: ATRIAL FIBRILLATION
  5. ISOSORBIDE DINITRATE [Concomitant]
     Indication: HYPERTENSION
  6. CELEBREX [Concomitant]
     Indication: ARTHRITIS
  7. ALLOPURINOL [Concomitant]
     Indication: GOUT
  8. SIMVASTATIN [Concomitant]
     Indication: BLOOD CHOLESTEROL INCREASED

REACTIONS (2)
  - GASTROOESOPHAGEAL REFLUX DISEASE [None]
  - DYSGEUSIA [None]
